FAERS Safety Report 24745408 (Version 1)
Quarter: 2024Q4

REPORT INFORMATION
  Report Type: Spontaneous
  Country: HR (occurrence: HR)
  Receive Date: 20241217
  Receipt Date: 20241217
  Transmission Date: 20250115
  Serious: Yes (Death, Life-Threatening, Hospitalization, Other)
  Sender: BRISTOL-MYERS SQUIBB COMPANY
  Company Number: HR-STADA-01333242

PATIENT
  Age: 62 Year
  Sex: Male

DRUGS (12)
  1. AZACITIDINE [Suspect]
     Active Substance: AZACITIDINE
     Indication: Transformation to acute myeloid leukaemia
     Dosage: ON DAYS 1-7
  2. AZACITIDINE [Suspect]
     Active Substance: AZACITIDINE
     Indication: Chronic myelomonocytic leukaemia
  3. VENETOCLAX [Suspect]
     Active Substance: VENETOCLAX
     Indication: Transformation to acute myeloid leukaemia
     Dosage: 100-200-400 MG THREE DAY RAMP-UP SCHEDULE
  4. VENETOCLAX [Suspect]
     Active Substance: VENETOCLAX
     Indication: Chronic myelomonocytic leukaemia
     Dosage: THREE DAY RAMP-UP SCHEDULE
  5. VENETOCLAX [Suspect]
     Active Substance: VENETOCLAX
     Dosage: THREE DAY RAMP-UP SCHEDULE
  6. VENETOCLAX [Suspect]
     Active Substance: VENETOCLAX
     Dosage: 100-200-400 MG THREE DAY RAMP-UP SCHEDULE
  7. EPINEPHRINE [Concomitant]
     Active Substance: EPINEPHRINE
     Indication: Cardiac arrest
     Dosage: EVERY 3-5 MIN
     Route: 042
  8. ALLOPURINOL [Concomitant]
     Active Substance: ALLOPURINOL
     Indication: Product used for unknown indication
  9. PANTOPRAZOLE [Concomitant]
     Active Substance: PANTOPRAZOLE
     Indication: Product used for unknown indication
  10. METFORMIN [Concomitant]
     Active Substance: METFORMIN HYDROCHLORIDE
     Indication: Diabetes mellitus
  11. FUROSEMIDE [Concomitant]
     Active Substance: FUROSEMIDE
     Indication: Hypertension
  12. PIPERACILLIN SODIUM\TAZOBACTAM SODIUM [Concomitant]
     Active Substance: PIPERACILLIN SODIUM\TAZOBACTAM SODIUM
     Indication: Pyrexia

REACTIONS (1)
  - Cardiac tamponade [Fatal]
